FAERS Safety Report 9637517 (Version 1)
Quarter: 2013Q4

REPORT INFORMATION
  Report Type: Spontaneous
  Country: US (occurrence: None)
  Receive Date: 20131018
  Receipt Date: 20131018
  Transmission Date: 20140711
  Serious: Yes (Hospitalization, Other)
  Sender: FDA-Public Use
  Company Number: US-ZYDUS-002318

PATIENT
  Age: 46 Year
  Sex: Male

DRUGS (4)
  1. RISPERIDONE [Suspect]
  2. ARIPIPRAZOLE [Suspect]
  3. BUPROPION (BUPROPION) [Concomitant]
  4. LITHIUM (LITHIUM) [Concomitant]

REACTIONS (3)
  - Neuroleptic malignant syndrome [None]
  - Catatonia [None]
  - Depressive symptom [None]
